FAERS Safety Report 21133063 (Version 2)
Quarter: 2022Q4

REPORT INFORMATION
  Report Type: Report from Study
  Country: CO (occurrence: CO)
  Receive Date: 20220726
  Receipt Date: 20221227
  Transmission Date: 20230113
  Serious: Yes (Life-Threatening, Hospitalization, Other)
  Sender: FDA-Public Use
  Company Number: CO-ABBVIE-22K-036-4481388-00

PATIENT
  Sex: Female
  Weight: 63 kg

DRUGS (1)
  1. ZEMPLAR [Suspect]
     Active Substance: PARICALCITOL
     Indication: Hyperparathyroidism secondary
     Route: 042
     Dates: start: 20220412, end: 20221129

REACTIONS (4)
  - Respiratory arrest [Unknown]
  - Malaise [Unknown]
  - Gastric disorder [Unknown]
  - Cough [Unknown]

NARRATIVE: CASE EVENT DATE: 20220101
